FAERS Safety Report 8841192 (Version 1)
Quarter: 2012Q4

REPORT INFORMATION
  Report Type: 
  Country: US (occurrence: US)
  Receive Date: 20121015
  Receipt Date: 20121015
  Transmission Date: 20130627
  Serious: Yes (Death)
  Sender: FDA-Public Use
  Company Number: US-ROCHE-1128685

PATIENT
  Sex: Female

DRUGS (5)
  1. AVASTIN [Suspect]
     Indication: LUNG NEOPLASM MALIGNANT
     Route: 042
     Dates: start: 20080314, end: 20080516
  2. AVASTIN [Suspect]
     Indication: METASTASES TO LIVER
  3. TAXOTERE [Concomitant]
  4. CARBOPLATIN [Concomitant]
  5. GEMZAR [Concomitant]

REACTIONS (1)
  - Lung neoplasm malignant [Fatal]
